FAERS Safety Report 10142898 (Version 2)
Quarter: 2014Q2

REPORT INFORMATION
  Report Type: Spontaneous
  Country: US (occurrence: US)
  Receive Date: 20140430
  Receipt Date: 20140519
  Transmission Date: 20141212
  Serious: Yes (Other)
  Sender: FDA-Public Use
  Company Number: US-JNJFOC-20140416907

PATIENT
  Age: 42 Year
  Sex: Female
  Weight: 104.33 kg

DRUGS (4)
  1. NUCYNTA ER [Suspect]
     Indication: BACK INJURY
     Route: 048
  2. OXYCODONE [Concomitant]
     Indication: BACK PAIN
     Dosage: 15 MG TWICE A DAY
     Route: 048
  3. NEXIUM [Concomitant]
     Indication: GASTROOESOPHAGEAL REFLUX DISEASE
     Route: 048
  4. VOLTAREN [Concomitant]
     Indication: INFLAMMATION
     Dosage: 100 MG TWICE A DAY
     Route: 048
     Dates: start: 2013

REACTIONS (2)
  - Knee operation [Unknown]
  - Drug screen positive [Not Recovered/Not Resolved]
